FAERS Safety Report 13795484 (Version 2)
Quarter: 2018Q2

REPORT INFORMATION
  Report Type: Not Available
  Country: US (occurrence: US)
  Receive Date: 20170726
  Receipt Date: 20180420
  Transmission Date: 20180711
  Serious: No
  Sender: FDA-Public Use
  Company Number: US-NEUROCRINE BIOSCIENCES INC.-2017NBI00279

PATIENT
  Age: 61 Year
  Sex: Female
  Weight: 45.85 kg

DRUGS (7)
  1. RANITIDINE. [Concomitant]
     Active Substance: RANITIDINE
  2. CLONAZEPAM. [Concomitant]
     Active Substance: CLONAZEPAM
  3. INGREZZA [Suspect]
     Active Substance: VALBENAZINE
     Indication: TARDIVE DYSKINESIA
     Dosage: AT NIGHT
     Route: 048
     Dates: start: 20170601, end: 20170605
  4. SALINE SOLUTION [Concomitant]
     Active Substance: SODIUM CHLORIDE
     Route: 045
  5. BOTOX [Suspect]
     Active Substance: ONABOTULINUMTOXINA
     Indication: PRODUCT USED FOR UNKNOWN INDICATION
  6. DEXILANT ER [Concomitant]
  7. BACLOFEN. [Concomitant]
     Active Substance: BACLOFEN
     Dosage: AT NIGHT

REACTIONS (4)
  - Headache [Recovered/Resolved]
  - Impaired driving ability [Recovered/Resolved]
  - Vasodilatation [Recovered/Resolved]
  - Muscle spasms [Recovered/Resolved]

NARRATIVE: CASE EVENT DATE: 201706
